FAERS Safety Report 7792867-4 (Version None)
Quarter: 2011Q4

REPORT INFORMATION
  Report Type: 
  Country: None (occurrence: None)
  Receive Date: 20111003
  Receipt Date: 20110927
  Transmission Date: 20120403
  Serious: Yes (Other)
  Sender: FDA-Public Use
  Company Number: PHHY2011BE77178

PATIENT
  Sex: Female

DRUGS (6)
  1. ZOMETA [Suspect]
     Indication: METASTASES TO BONE
     Dosage: 4 MG, EVERY 4 WEEKS
     Dates: start: 20110215
  2. BISOPROLOL [Concomitant]
     Dosage: UNK UKN, UNK
  3. FEMARA [Concomitant]
     Indication: BREAST CANCER
  4. LEVOTHYROXINE SODIUM [Concomitant]
     Dosage: UNK UKN, UNK
  5. PRAVASTATIN [Concomitant]
     Dosage: UNK UKN, UNK
  6. ZOMETA [Suspect]
     Dosage: 3 MG, EVERY 4 WEEKS
     Dates: start: 20110805

REACTIONS (5)
  - INFLUENZA LIKE ILLNESS [None]
  - JOINT STIFFNESS [None]
  - NAUSEA [None]
  - ARTHRALGIA [None]
  - PAIN [None]
